FAERS Safety Report 17033166 (Version 1)
Quarter: 2019Q4

REPORT INFORMATION
  Report Type: Spontaneous
  Country: US (occurrence: US)
  Receive Date: 20191114
  Receipt Date: 20191114
  Transmission Date: 20200122
  Serious: No
  Sender: FDA-Public Use
  Company Number: US-SA-2019SA306858

PATIENT
  Sex: Female

DRUGS (4)
  1. DUPIXENT [Suspect]
     Active Substance: DUPILUMAB
     Indication: BREAST CANCER FEMALE
  2. DUPIXENT [Suspect]
     Active Substance: DUPILUMAB
     Indication: RASH
  3. DUPIXENT [Suspect]
     Active Substance: DUPILUMAB
     Indication: DERMATITIS ATOPIC
     Dosage: 300 MG, QOW
     Route: 058
  4. DUPIXENT [Suspect]
     Active Substance: DUPILUMAB
     Indication: OESTROGEN RECEPTOR POSITIVE BREAST CANCER

REACTIONS (2)
  - Product use in unapproved indication [Unknown]
  - Dermatitis atopic [Unknown]
